FAERS Safety Report 6525743-5 (Version None)
Quarter: 2010Q1

REPORT INFORMATION
  Report Type: 
  Country: None (occurrence: None)
  Receive Date: 20100104
  Receipt Date: 20091221
  Transmission Date: 20100710
  Serious: Yes (Other)
  Sender: FDA-Public Use
  Company Number: US-JNJCH-2009032999

PATIENT
  Sex: Male

DRUGS (1)
  1. LISTERINE WHITENING VIBRANT WHITE PRE-BRUSH RINSE [Suspect]
     Indication: DENTAL DISORDER PROPHYLAXIS
     Dosage: TEXT:UNSPECIFIED
     Route: 048

REACTIONS (5)
  - APPLICATION SITE BURN [None]
  - DIARRHOEA [None]
  - ORAL MUCOSAL DISCOLOURATION [None]
  - PRODUCT QUALITY ISSUE [None]
  - SPEECH DISORDER [None]
